FAERS Safety Report 5871561-0 (Version None)
Quarter: 2008Q3

REPORT INFORMATION
  Report Type: 
  Country: None (occurrence: None)
  Receive Date: 20080905
  Receipt Date: 20080430
  Transmission Date: 20090109
  Serious: No
  Sender: FDA-Public Use
  Company Number: A0725618A

PATIENT
  Age: 55 Year
  Sex: Male

DRUGS (5)
  1. REQUIP [Suspect]
     Indication: PARKINSON'S DISEASE
     Dosage: 5MG FIVE TIMES PER DAY
     Route: 048
     Dates: start: 19980101, end: 20070701
  2. L-DOPA [Concomitant]
  3. ATENOLOL [Concomitant]
  4. ASPIRIN [Concomitant]
  5. MIRAPEX [Concomitant]
     Route: 065

REACTIONS (3)
  - OBSESSIVE-COMPULSIVE DISORDER [None]
  - PATHOLOGICAL GAMBLING [None]
  - PROMISCUITY [None]
